FAERS Safety Report 21147385 (Version 1)
Quarter: 2022Q3

REPORT INFORMATION
  Report Type: Spontaneous
  Country: TR (occurrence: TR)
  Receive Date: 20220729
  Receipt Date: 20220729
  Transmission Date: 20221027
  Serious: Yes (Hospitalization)
  Sender: FDA-Public Use
  Company Number: TR-PFIZER INC-202201016441

PATIENT
  Age: 44 Year
  Sex: Male

DRUGS (8)
  1. METHYLPREDNISOLONE ACETATE [Suspect]
     Active Substance: METHYLPREDNISOLONE ACETATE
     Indication: Premedication
     Dosage: 80 MG
  2. PHENIRAMINE MALEATE [Suspect]
     Active Substance: PHENIRAMINE MALEATE
     Indication: Premedication
     Dosage: 45.5 MG
  3. ACETAMINOPHEN [Suspect]
     Active Substance: ACETAMINOPHEN
     Indication: Premedication
     Dosage: 1000 MG, 2X/DAY
  4. PANTOPRAZOLE [Suspect]
     Active Substance: PANTOPRAZOLE
     Indication: Premedication
     Dosage: 40 MG
  5. OFATUMUMAB [Suspect]
     Active Substance: OFATUMUMAB
     Indication: Focal segmental glomerulosclerosis
     Dosage: 100 MG
  6. OFATUMUMAB [Suspect]
     Active Substance: OFATUMUMAB
     Dosage: 600 MG
  7. ALBUTEROL [Suspect]
     Active Substance: ALBUTEROL
     Indication: Premedication
     Dosage: 5 ML NEBULA (2 DOSES)
  8. SODIUM CHLORIDE [Concomitant]
     Active Substance: SODIUM CHLORIDE
     Indication: Vehicle solution use
     Dosage: 1000-ML OF 0.9% NACL

REACTIONS (1)
  - Gastroenteritis [Unknown]
